FAERS Safety Report 14078323 (Version 1)
Quarter: 2017Q4

REPORT INFORMATION
  Report Type: Spontaneous
  Country: US (occurrence: US)
  Receive Date: 20171012
  Receipt Date: 20171012
  Transmission Date: 20180321
  Serious: No
  Sender: FDA-Public Use
  Company Number: US-PFIZER INC-2017436511

PATIENT
  Sex: Female

DRUGS (2)
  1. LETROZOLE. [Suspect]
     Active Substance: LETROZOLE
     Dosage: UNK
     Dates: start: 20170912
  2. IBRANCE [Suspect]
     Active Substance: PALBOCICLIB
     Dosage: UNK
     Dates: start: 20170912

REACTIONS (2)
  - Vision blurred [Unknown]
  - Nausea [Recovering/Resolving]

NARRATIVE: CASE EVENT DATE: 201709
